FAERS Safety Report 22066429 (Version 1)
Quarter: 2023Q1

REPORT INFORMATION
  Report Type: Spontaneous
  Country: US (occurrence: None)
  Receive Date: 20230306
  Receipt Date: 20230306
  Transmission Date: 20230417
  Serious: No
  Sender: FDA-Public Use
  Company Number: None

PATIENT
  Sex: Female

DRUGS (1)
  1. ENBREL [Suspect]
     Active Substance: ETANERCEPT
     Indication: Psoriasis
     Dosage: 50MG/ML EVERY 7 DAYS SUB-Q
     Route: 058
     Dates: start: 20220428

REACTIONS (2)
  - Psoriasis [None]
  - Drug ineffective [None]
